FAERS Safety Report 5121329-8 (Version None)
Quarter: 2006Q4

REPORT INFORMATION
  Report Type: 
  Country: None (occurrence: None)
  Receive Date: 20061002
  Receipt Date: 20060921
  Transmission Date: 20070319
  Serious: Yes (Death)
  Sender: FDA-Public Use
  Company Number: 2006106519

PATIENT
  Age: 40 Year
  Sex: Male

DRUGS (8)
  1. LIPITOR [Suspect]
     Indication: HYPERLIPIDAEMIA
     Dosage: (80 MG, 1 IN 1 D), ORAL
     Route: 048
     Dates: end: 20060822
  2. GEMFIBROZIL [Suspect]
     Indication: HYPERLIPIDAEMIA
     Dosage: (600 MG, 2 IN 1 D), ORAL
     Route: 048
     Dates: end: 20060822
  3. MS CONTIN [Concomitant]
  4. ZOLOFT [Concomitant]
  5. IBUPROFEN [Concomitant]
  6. PANADEINE FORTE (CODEINE PHOSPHATE, PARACETAMOL) [Concomitant]
  7. DIAZEPAM [Concomitant]
  8. ASPIRIN [Concomitant]

REACTIONS (4)
  - CARDIAC ARREST [None]
  - MYOSITIS [None]
  - RENAL FAILURE [None]
  - RHABDOMYOLYSIS [None]
